FAERS Safety Report 21849553 (Version 1)
Quarter: 2023Q1

REPORT INFORMATION
  Report Type: Spontaneous
  Country: US (occurrence: US)
  Receive Date: 20230111
  Receipt Date: 20230111
  Transmission Date: 20230417
  Serious: Yes (Death, Other)
  Sender: FDA-Public Use
  Company Number: US-ADMA BIOLOGICS INC.-US-2023ADM000002

PATIENT
  Age: 68 Year
  Sex: Female

DRUGS (1)
  1. HUMAN IMMUNOGLOBULIN G [Suspect]
     Active Substance: HUMAN IMMUNOGLOBULIN G
     Indication: Neuromyopathy
     Dosage: 400 MG/KG, QD
     Route: 065

REACTIONS (8)
  - Respiratory failure [Fatal]
  - Stress cardiomyopathy [Unknown]
  - Left ventricular failure [Unknown]
  - Chest pain [Unknown]
  - Electrocardiogram ST segment elevation [Unknown]
  - Troponin I abnormal [Unknown]
  - N-terminal prohormone brain natriuretic peptide abnormal [Unknown]
  - Off label use [Unknown]
